FAERS Safety Report 24324996 (Version 3)
Quarter: 2025Q4

REPORT INFORMATION
  Report Type: Spontaneous
  Country: US (occurrence: US)
  Receive Date: 20240916
  Receipt Date: 20251114
  Transmission Date: 20260118
  Serious: No
  Sender: NOVARTIS
  Company Number: US-ORG100013279-031745

PATIENT
  Sex: Female

DRUGS (1)
  1. TERBINAFINE [Suspect]
     Active Substance: TERBINAFINE
     Indication: Product used for unknown indication
     Dosage: 1% CREAM 30G SMALLER THAN A DIME SIZE (TOPICAL)
     Route: 065
     Dates: start: 20240812

REACTIONS (1)
  - Drug ineffective [Unknown]
